FAERS Safety Report 5584534-2 (Version None)
Quarter: 2008Q1

REPORT INFORMATION
  Report Type: 
  Country: None (occurrence: None)
  Receive Date: 20080103
  Receipt Date: 20061009
  Transmission Date: 20080703
  Serious: Yes (Other)
  Sender: FDA-Public Use
  Company Number: 2006VX001747

PATIENT
  Sex: Female

DRUGS (1)
  1. MESTINON [Suspect]
     Dosage: 45 MG; PO
     Route: 048

REACTIONS (1)
  - ILEUS [None]
